FAERS Safety Report 4661197-1 (Version None)
Quarter: 2005Q2

REPORT INFORMATION
  Report Type: 
  Country: None (occurrence: None)
  Receive Date: 20050513
  Receipt Date: 20050509
  Transmission Date: 20051028
  Serious: Yes (Hospitalization)
  Sender: FDA-Public Use
  Company Number: DE-BOEHRINGER INGELHEIM PHARMACEUTICALS, INC.-2005-DE-01763DE

PATIENT
  Sex: Male
  Weight: 110 kg

DRUGS (4)
  1. MOBEC 15 MG TABLETTEN [Suspect]
     Route: 048
  2. FLUNEURIN [Suspect]
     Route: 048
  3. PIROXICAM [Suspect]
     Route: 048
  4. TRAMADOL HCL [Suspect]
     Route: 048

REACTIONS (4)
  - ABDOMINAL PAIN [None]
  - DRUG ABUSER [None]
  - FATIGUE [None]
  - SUICIDE ATTEMPT [None]
